FAERS Safety Report 10189054 (Version 2)
Quarter: 2016Q4

REPORT INFORMATION
  Report Type: Spontaneous
  Country: JP (occurrence: JP)
  Receive Date: 20140522
  Receipt Date: 20161013
  Transmission Date: 20170206
  Serious: Yes (Other)
  Sender: FDA-Public Use
  Company Number: JP-ASTRAZENECA-2014SE34653

PATIENT
  Age: 63 Year
  Sex: Male

DRUGS (2)
  1. ZOLADEX [Suspect]
     Active Substance: GOSERELIN ACETATE
     Indication: PROSTATE CANCER
     Dosage: 3.6MG UNKNOWN
     Route: 058
  2. RADIOTHERAPY [Concomitant]
     Active Substance: RADIATION THERAPY
     Indication: PROSTATE CANCER
     Route: 065

REACTIONS (2)
  - Blood testosterone increased [Recovering/Resolving]
  - Malignant neoplasm progression [Recovering/Resolving]
